FAERS Safety Report 7254749-6 (Version None)
Quarter: 2011Q1

REPORT INFORMATION
  Report Type: 
  Country: None (occurrence: None)
  Receive Date: 20110129
  Receipt Date: 20100324
  Transmission Date: 20110831
  Serious: No
  Sender: FDA-Public Use
  Company Number: US-ABBOTT-10P-163-0634120-00

PATIENT
  Sex: Female
  Weight: 105.78 kg

DRUGS (1)
  1. HUMIRA [Suspect]
     Indication: PSORIATIC ARTHROPATHY
     Dates: start: 20090918

REACTIONS (3)
  - ROAD TRAFFIC ACCIDENT [None]
  - INJECTION SITE REACTION [None]
  - ALOPECIA [None]
